FAERS Safety Report 19154261 (Version 2)
Quarter: 2021Q3

REPORT INFORMATION
  Report Type: Other
  Country: ZA (occurrence: ZA)
  Receive Date: 20210419
  Receipt Date: 20210707
  Transmission Date: 20211014
  Serious: Yes (Death)
  Sender: FDA-Public Use
  Company Number: ZA-ROCHE-2811647

PATIENT
  Age: 57 Year
  Sex: Female

DRUGS (9)
  1. PANAFCORT [Concomitant]
     Active Substance: PREDNISONE
     Indication: RHEUMATOID ARTHRITIS
     Dosage: 5 MG PER DAY
     Route: 048
  2. METHOTREXATE. [Concomitant]
     Active Substance: METHOTREXATE
     Indication: RHEUMATOID ARTHRITIS
     Dosage: 15 MG PER WEEK
     Route: 048
  3. CALCIFEROL [COLECALCIFEROL] [Concomitant]
     Active Substance: CHOLECALCIFEROL
     Indication: VITAMIN D DEFICIENCY
  4. VUSOR [Concomitant]
     Active Substance: ROSUVASTATIN CALCIUM
     Indication: HYPERLIPIDAEMIA
     Route: 048
  5. MABTHERA [Suspect]
     Active Substance: RITUXIMAB
     Indication: RHEUMATOID ARTHRITIS
     Dosage: DATE OF LAST INFUSIONS WAS 08/07/2020 AND 22/07/2020
     Route: 041
     Dates: start: 2011
  6. FOLIC ACID. [Concomitant]
     Active Substance: FOLIC ACID
     Indication: RHEUMATOID ARTHRITIS
     Dosage: 5MG PER DAY FOR AMONTH
     Route: 048
  7. ECOTRIN [Concomitant]
     Active Substance: ASPIRIN
     Route: 048
  8. ULTRACET [Concomitant]
     Active Substance: ACETAMINOPHEN\TRAMADOL HYDROCHLORIDE
     Indication: RHEUMATOID ARTHRITIS
     Route: 048
  9. FORTZAAR [Concomitant]
     Active Substance: HYDROCHLOROTHIAZIDE\LOSARTAN POTASSIUM
     Indication: PEMPHIGUS
     Route: 048

REACTIONS (2)
  - COVID-19 [Fatal]
  - Oxygen saturation abnormal [Unknown]

NARRATIVE: CASE EVENT DATE: 202011
